FAERS Safety Report 12847512 (Version 2)
Quarter: 2016Q4

REPORT INFORMATION
  Report Type: Spontaneous
  Country: RU (occurrence: RU)
  Receive Date: 20161014
  Receipt Date: 20161026
  Transmission Date: 20170207
  Serious: Yes (Death, Hospitalization)
  Sender: FDA-Public Use
  Company Number: RU-SA-2016SA184978

PATIENT
  Age: 85 Year
  Sex: Female
  Weight: 72 kg

DRUGS (27)
  1. PLAVIX [Suspect]
     Active Substance: CLOPIDOGREL BISULFATE
     Dosage: DOSE- 75
     Route: 048
     Dates: start: 20160905, end: 20160916
  2. ASPIRIN. [Suspect]
     Active Substance: ASPIRIN
     Dosage: DOSE- 81
     Route: 048
     Dates: start: 20160905, end: 20160916
  3. ATROPINE SULFATE. [Concomitant]
     Active Substance: ATROPINE SULFATE
     Dates: start: 20151109, end: 20160919
  4. LOSARTAN. [Concomitant]
     Active Substance: LOSARTAN
     Dates: start: 20151109, end: 20160916
  5. FUROSEMIDE. [Concomitant]
     Active Substance: FUROSEMIDE
     Dates: start: 20151109, end: 20160918
  6. GELOFUSINE [Concomitant]
     Active Substance: GELATIN\SODIUM CHLORIDE
     Dates: start: 20160917, end: 20160917
  7. MORPHINE HYDROCHLORIDE [Concomitant]
     Active Substance: MORPHINE HYDROCHLORIDE
     Dates: start: 20160917, end: 20160917
  8. ATORVASTATIN [Concomitant]
     Active Substance: ATORVASTATIN
     Dates: start: 20151109, end: 20160916
  9. L-THYROXIN [Concomitant]
     Active Substance: LEVOTHYROXINE SODIUM
     Dates: start: 2008, end: 20160916
  10. WARFARIN [Concomitant]
     Active Substance: WARFARIN
     Dates: start: 20160826, end: 20160904
  11. PLAVIX [Suspect]
     Active Substance: CLOPIDOGREL BISULFATE
     Route: 065
     Dates: start: 20151109, end: 20160904
  12. CIPROFLOXACIN. [Concomitant]
     Active Substance: CIPROFLOXACIN
     Dates: start: 20160901, end: 20160906
  13. INSULIN ASPART [Concomitant]
     Active Substance: INSULIN ASPART
     Dates: start: 20151109, end: 20160919
  14. ENOXAPARIN [Concomitant]
     Active Substance: ENOXAPARIN
     Dates: start: 20160828, end: 20160903
  15. PHYTOMENADION [Concomitant]
     Dates: start: 20160917, end: 20160917
  16. DOPAMINE [Concomitant]
     Active Substance: DOPAMINE\DOPAMINE HYDROCHLORIDE
     Dates: start: 20160917, end: 20160918
  17. CEFTRIAXONE. [Concomitant]
     Active Substance: CEFTRIAXONE
     Dates: start: 20160917, end: 20160919
  18. DICYNONE [Concomitant]
     Active Substance: ETHAMSYLATE
     Dates: start: 20160917, end: 20160919
  19. ASPIRIN. [Suspect]
     Active Substance: ASPIRIN
     Route: 065
     Dates: start: 20151109, end: 20160904
  20. CARVEDILOL. [Concomitant]
     Active Substance: CARVEDILOL
     Dates: start: 20151123, end: 20160916
  21. OMEPRAZOLE. [Concomitant]
     Active Substance: OMEPRAZOLE
     Dates: start: 20160825, end: 20160919
  22. RINGER [Concomitant]
     Dates: start: 20160917, end: 20160917
  23. ACILOC [Concomitant]
     Dates: start: 20160917, end: 20160919
  24. PLASMA [Concomitant]
     Active Substance: HUMAN PLASMA
     Dates: start: 20160917, end: 20160919
  25. SORBIFER DURULES [Concomitant]
     Active Substance: FERROUS SULFATE
     Dates: start: 20160829, end: 20160916
  26. SPIRONOLACTONE. [Concomitant]
     Active Substance: SPIRONOLACTONE
     Dates: start: 20151109, end: 20160916
  27. CALCIUM CHLORIDE. [Concomitant]
     Active Substance: CALCIUM CHLORIDE
     Dates: start: 20160917, end: 20160918

REACTIONS (1)
  - Mesenteric artery thrombosis [Fatal]

NARRATIVE: CASE EVENT DATE: 20160917
